FAERS Safety Report 8842501 (Version 1)
Quarter: 2012Q4

REPORT INFORMATION
  Report Type: Spontaneous
  Country: US (occurrence: None)
  Receive Date: 20121015
  Receipt Date: 20121015
  Transmission Date: 20130627
  Serious: Yes (Other)
  Sender: FDA-Public Use
  Company Number: None

PATIENT
  Age: 60 Year
  Sex: Female
  Weight: 63.5 kg

DRUGS (2)
  1. AMLODIPINE [Suspect]
     Indication: HYPERTENSION
     Route: 048
     Dates: start: 20121002, end: 20121013
  2. AMLODIPIN [Suspect]
     Route: 048

REACTIONS (4)
  - Throat irritation [None]
  - Chest pain [None]
  - Chest discomfort [None]
  - Product quality issue [None]
